FAERS Safety Report 4708380-4 (Version None)
Quarter: 2005Q3

REPORT INFORMATION
  Report Type: 
  Country: None (occurrence: None)
  Receive Date: 20050706
  Receipt Date: 20050706
  Transmission Date: 20060218
  Serious: Yes (Other)
  Sender: FDA-Public Use
  Company Number: None

PATIENT
  Sex: Female
  Weight: 42.7 kg

DRUGS (9)
  1. PACLITAXEL [Suspect]
     Indication: LUNG SQUAMOUS CELL CARCINOMA STAGE UNSPECIFIED
     Dosage: 50 MG/M2, OVER 1 HOUR, DAY, 1,8,15,22,29,36,43
     Dates: start: 20050523
  2. CARBOPLATIN [Suspect]
     Dosage: AUC -2, OVER 30 MINUTES, DAYS 1,8,15,22,29,36,43
  3. RADIATION [Suspect]
  4. COMBIVENT [Concomitant]
  5. LISINOPRIL [Concomitant]
  6. PERCOCET [Concomitant]
  7. PROTONIX [Concomitant]
  8. ZOCOR [Concomitant]
  9. COLACE [Concomitant]

REACTIONS (13)
  - ABDOMINAL PAIN LOWER [None]
  - ABDOMINAL TENDERNESS [None]
  - ASTHENIA [None]
  - CONSTIPATION [None]
  - DECREASED APPETITE [None]
  - FAILURE TO THRIVE [None]
  - FATIGUE [None]
  - HAEMOGLOBIN DECREASED [None]
  - MALAISE [None]
  - MUCOUS MEMBRANE DISORDER [None]
  - NEUTROPHIL COUNT ABNORMAL [None]
  - RESPIRATORY RATE INCREASED [None]
  - WHITE BLOOD CELL COUNT DECREASED [None]
